FAERS Safety Report 25967310 (Version 2)
Quarter: 2025Q4

REPORT INFORMATION
  Report Type: Spontaneous
  Country: EU (occurrence: EU)
  Receive Date: 20251028
  Receipt Date: 20251112
  Transmission Date: 20260118
  Serious: Yes (Hospitalization, Other)
  Sender: SANOFI AVENTIS
  Company Number: EU-BIOVITRUM-2025-DE-012701

PATIENT
  Age: 28 Year
  Sex: Male
  Weight: 70 kg

DRUGS (5)
  1. EFANESOCTOCOG ALFA [Suspect]
     Active Substance: EFANESOCTOCOG ALFA
     Indication: Factor VIII deficiency
     Dosage: 3000 IU, QW
     Route: 065
     Dates: start: 20250808, end: 20250908
  2. EFANESOCTOCOG ALFA [Suspect]
     Active Substance: EFANESOCTOCOG ALFA
     Indication: Factor VIII deficiency
     Dosage: PRN ON DEMAND
     Dates: start: 20250903
  3. TRANEXAMIC ACID [Concomitant]
     Active Substance: TRANEXAMIC ACID
     Indication: Product used for unknown indication
     Dosage: 1 G, ADMINISTERED WITH INDUCTION OF ANESTHESIA
  4. TRANEXAMIC ACID [Concomitant]
     Active Substance: TRANEXAMIC ACID
     Dosage: 3 G, 3 ? 1 G TRANEXAMIC ACID WAS ADMINISTERED ORALLY EACH DAY
     Route: 048
  5. TRANEXAMIC ACID [Concomitant]
     Active Substance: TRANEXAMIC ACID
     Dosage: 3 ? 1 G TRANEXAMIC ACID WAS ADMINISTERED ORALLY EACH DAY
     Route: 048

REACTIONS (26)
  - Wound [Not Recovered/Not Resolved]
  - Haemorrhage [Not Recovered/Not Resolved]
  - Anti factor VIII antibody positive [Not Recovered/Not Resolved]
  - Pseudomonas test positive [Not Recovered/Not Resolved]
  - Haemoglobin decreased [Not Recovered/Not Resolved]
  - Cystitis klebsiella [Unknown]
  - White blood cell count increased [Not Recovered/Not Resolved]
  - Staphylococcus test positive [Unknown]
  - Red blood cell count decreased [Not Recovered/Not Resolved]
  - Musculoskeletal pain [Not Recovered/Not Resolved]
  - Anxiety [Unknown]
  - Vascular injury [Unknown]
  - Post procedural haemorrhage [Unknown]
  - Constipation [Unknown]
  - Red cell distribution width decreased [Recovered/Resolved]
  - C-reactive protein increased [Not Recovered/Not Resolved]
  - Proteus test positive [Not Recovered/Not Resolved]
  - Haematoma [Recovered/Resolved]
  - Enterococcus test positive [Unknown]
  - Escherichia test positive [Not Recovered/Not Resolved]
  - Mean cell haemoglobin concentration increased [Recovered/Resolved]
  - Infection [Unknown]
  - Haematocrit decreased [Recovering/Resolving]
  - Platelet count increased [Not Recovered/Not Resolved]
  - Corynebacterium test positive [Unknown]
  - Procedural pain [Unknown]

NARRATIVE: CASE EVENT DATE: 20250911
